FAERS Safety Report 15467821 (Version 3)
Quarter: 2024Q2

REPORT INFORMATION
  Report Type: Spontaneous
  Country: IT (occurrence: IT)
  Receive Date: 20181005
  Receipt Date: 20240619
  Transmission Date: 20240716
  Serious: Yes (Hospitalization)
  Sender: FDA-Public Use
  Company Number: IT-EMA-DD-20210715-Z4X8Q8-173755

PATIENT

DRUGS (1)
  1. IBUPROFEN [Suspect]
     Active Substance: IBUPROFEN
     Indication: Drug provocation test
     Route: 065

REACTIONS (3)
  - Anaphylactic reaction [Unknown]
  - Product use in unapproved indication [Unknown]
  - Off label use [Unknown]
